FAERS Safety Report 23105696 (Version 1)
Quarter: 2023Q4

REPORT INFORMATION
  Report Type: Spontaneous
  Country: US (occurrence: None)
  Receive Date: 20231023
  Receipt Date: 20231023
  Transmission Date: 20240110
  Serious: Yes (Life-Threatening, Hospitalization)
  Sender: FDA-Public Use
  Company Number: None

PATIENT
  Age: 79 Year
  Sex: Male
  Weight: 134 kg

DRUGS (2)
  1. RIVAROXABAN [Suspect]
     Active Substance: RIVAROXABAN
     Dosage: FREQUENCY : DAILY;?
     Route: 048
     Dates: start: 20200108, end: 20230403
  2. ASPIRIN [Suspect]
     Active Substance: ASPIRIN
     Dosage: FREQUENCY : DAILY;?
     Route: 048
     Dates: start: 20180917, end: 20230403

REACTIONS (6)
  - Duodenal ulcer haemorrhage [None]
  - Diarrhoea [None]
  - Cold sweat [None]
  - Hypotension [None]
  - Hypoxia [None]
  - Red blood cell transfusion [None]

NARRATIVE: CASE EVENT DATE: 20230403
